FAERS Safety Report 8574390-2 (Version None)
Quarter: 2012Q3

REPORT INFORMATION
  Report Type: 
  Country: None (occurrence: None)
  Receive Date: 20120806
  Receipt Date: 20120803
  Transmission Date: 20120928
  Serious: Yes (Death, Other)
  Sender: FDA-Public Use
  Company Number: CN-ROCHE-1096930

PATIENT

DRUGS (5)
  1. MABTHERA [Suspect]
     Indication: LYMPHOMA
     Dates: start: 20120609
  2. VINCRISTINE [Concomitant]
     Indication: LYMPHOMA
  3. PREDNISONE [Concomitant]
     Indication: LYMPHOMA
  4. CYCLOPHOSPHAMIDE [Concomitant]
     Indication: LYMPHOMA
  5. DOXORUBICIN HYDROCHLORIDE [Concomitant]
     Indication: LYMPHOMA

REACTIONS (3)
  - DISEASE PROGRESSION [None]
  - HISTIOCYTOSIS HAEMATOPHAGIC [None]
  - SEPSIS [None]
